FAERS Safety Report 7390962-5 (Version None)
Quarter: 2011Q2

REPORT INFORMATION
  Report Type: 
  Country: None (occurrence: None)
  Receive Date: 20110404
  Receipt Date: 20110328
  Transmission Date: 20111010
  Serious: Yes (Other)
  Sender: FDA-Public Use
  Company Number: US-PFIZER INC-2011069644

PATIENT
  Sex: Female

DRUGS (2)
  1. AMLODIPINE BESYLATE/VALSARTAN [Suspect]
     Dosage: 5/320 UNK, IN AM
  2. LIPITOR [Suspect]
     Dosage: 20 MG, IN PM

REACTIONS (4)
  - ARTHRALGIA [None]
  - PAIN IN EXTREMITY [None]
  - MUSCULOSKELETAL PAIN [None]
  - BACK PAIN [None]
